FAERS Safety Report 25650157 (Version 1)
Quarter: 2025Q3

REPORT INFORMATION
  Report Type: Other
  Country: TN (occurrence: TN)
  Receive Date: 20250806
  Receipt Date: 20250806
  Transmission Date: 20251021
  Serious: Yes (Hospitalization, Other)
  Sender: INNOGENIX, LLC
  Company Number: TN-Innogenix, LLC-2181959

PATIENT
  Age: 54 Year
  Sex: Male

DRUGS (3)
  1. HALOPERIDOL [Suspect]
     Active Substance: HALOPERIDOL
     Indication: Schizophrenia
  2. BIPERIDEN [Concomitant]
     Active Substance: BIPERIDEN
  3. LORAZEPAM [Concomitant]
     Active Substance: LORAZEPAM

REACTIONS (2)
  - Angioedema [Recovered/Resolved]
  - Oromandibular dystonia [Recovered/Resolved]
